FAERS Safety Report 9261173 (Version 1)
Quarter: 2013Q2

REPORT INFORMATION
  Report Type: Spontaneous
  Country: US (occurrence: US)
  Receive Date: 20130429
  Receipt Date: 20130429
  Transmission Date: 20140414
  Serious: No
  Sender: FDA-Public Use
  Company Number: US-AMGEN-USASP2012083392

PATIENT
  Sex: Male

DRUGS (1)
  1. SENSIPAR [Suspect]
     Indication: BLOOD CALCIUM INCREASED
     Dosage: 60 MG, QD
     Dates: start: 2012

REACTIONS (2)
  - Blood parathyroid hormone decreased [Unknown]
  - Blood calcium increased [Unknown]
